FAERS Safety Report 5192110-9 (Version None)
Quarter: 2006Q4

REPORT INFORMATION
  Report Type: 
  Country: None (occurrence: None)
  Receive Date: 20061220
  Receipt Date: 20061205
  Transmission Date: 20070319
  Serious: Yes (Death, Congenital Anomaly)
  Sender: FDA-Public Use
  Company Number: 8020688

PATIENT
  Sex: Female

DRUGS (2)
  1. KEPPRA [Suspect]
     Indication: EPILEPSY
     Dosage: 500 MG 2/D TRP
     Route: 064
     Dates: start: 20060601, end: 20061019
  2. MEGAFOL [Concomitant]

REACTIONS (12)
  - ABDOMINAL HERNIA [None]
  - ABNORMAL PALMAR/PLANTAR CREASES [None]
  - BLADDER AGENESIS [None]
  - DANDY-WALKER SYNDROME [None]
  - DRUG EXPOSURE DURING PREGNANCY [None]
  - DYSMORPHISM [None]
  - ECTOPIC KIDNEY [None]
  - INTRA-UTERINE DEATH [None]
  - MICROGNATHIA [None]
  - MULTIPLE CONGENITAL ABNORMALITIES [None]
  - SEX CHROMOSOME ABNORMALITY [None]
  - SINGLE UMBILICAL ARTERY [None]
